FAERS Safety Report 21022048 (Version 1)
Quarter: 2022Q2

REPORT INFORMATION
  Report Type: Spontaneous
  Country: US (occurrence: None)
  Receive Date: 20220628
  Receipt Date: 20220628
  Transmission Date: 20220720
  Serious: Yes (Disabling)
  Sender: FDA-Public Use
  Company Number: None

PATIENT
  Age: 43 Year
  Sex: Female
  Weight: 53.1 kg

DRUGS (2)
  1. BOTOX [Suspect]
     Active Substance: ONABOTULINUMTOXINA
     Indication: Product used for unknown indication
     Dates: start: 20181018, end: 20210801
  2. CROMOLYN [Concomitant]
     Active Substance: CROMOLYN

REACTIONS (9)
  - Dizziness [None]
  - Derealisation [None]
  - Tachycardia [None]
  - Panic attack [None]
  - Tremor [None]
  - Migraine [None]
  - Food allergy [None]
  - Insomnia [None]
  - Palpitations [None]

NARRATIVE: CASE EVENT DATE: 20210801
